FAERS Safety Report 11605775 (Version 2)
Quarter: 2015Q4

REPORT INFORMATION
  Report Type: Spontaneous
  Country: BR (occurrence: BR)
  Receive Date: 20151007
  Receipt Date: 20151021
  Transmission Date: 20160304
  Serious: Yes (Other)
  Sender: FDA-Public Use
  Company Number: PHHY2015BR120624

PATIENT
  Age: 53 Year
  Sex: Female

DRUGS (2)
  1. PREBICTAL [Concomitant]
     Active Substance: PREGABALIN
     Indication: NEUROPATHY PERIPHERAL
     Dosage: 1 DF, QD
     Route: 048
  2. ACLASTA [Suspect]
     Active Substance: ZOLEDRONIC ACID
     Indication: OSTEOPOROSIS
     Dosage: 5 MG /100ML, YEARLY
     Route: 042

REACTIONS (5)
  - Pyrexia [Recovered/Resolved]
  - Pathological fracture [Not Recovered/Not Resolved]
  - Bone pain [Recovered/Resolved]
  - Fracture pain [Unknown]
  - Malabsorption [Unknown]
